FAERS Safety Report 9924021 (Version 1)
Quarter: 2014Q1

REPORT INFORMATION
  Report Type: Spontaneous
  Country: US (occurrence: US)
  Receive Date: 20140225
  Receipt Date: 20140225
  Transmission Date: 20141002
  Serious: Yes (Death)
  Sender: FDA-Public Use
  Company Number: US-ROCHE-1355090

PATIENT
  Age: 51 Year
  Sex: Male

DRUGS (1)
  1. ROCEPHIN [Suspect]
     Indication: LYME DISEASE
     Dosage: 1G/50ML
     Route: 042
     Dates: start: 20100106

REACTIONS (1)
  - Death [Fatal]
